FAERS Safety Report 4330619-8 (Version None)
Quarter: 2004Q1

REPORT INFORMATION
  Report Type: 
  Country: None (occurrence: None)
  Receive Date: 20040329
  Receipt Date: 20040305
  Transmission Date: 20041129
  Serious: Yes (Hospitalization)
  Sender: FDA-Public Use
  Company Number: 7638

PATIENT
  Age: 37 Year
  Sex: Female

DRUGS (3)
  1. METHOTREXATE [Suspect]
     Indication: ECTOPIC PREGNANCY TERMINATION
     Dosage: 50 MG/M2 PER CYCLE IM
     Route: 030
  2. FOLIC ACID [Concomitant]
  3. MIFEPRISTONE [Concomitant]

REACTIONS (5)
  - ABORTION SPONTANEOUS [None]
  - COMPLICATIONS OF MATERNAL EXPOSURE TO THERAPEUTIC DRUGS [None]
  - DRUG INEFFECTIVE FOR UNAPPROVED INDICATION [None]
  - MATERNAL DRUGS AFFECTING FOETUS [None]
  - UTERINE HAEMORRHAGE [None]
